FAERS Safety Report 5338493-8 (Version None)
Quarter: 2007Q2

REPORT INFORMATION
  Report Type: 
  Country: None (occurrence: None)
  Receive Date: 20070530
  Receipt Date: 20070521
  Transmission Date: 20071010
  Serious: Yes (Hospitalization)
  Sender: FDA-Public Use
  Company Number: DK-ASTRAZENECA-2007SE02812

PATIENT
  Age: 7653 Day
  Sex: Female
  Weight: 51.7 kg

DRUGS (3)
  1. SEROQUEL [Suspect]
     Indication: SCHIZOPHRENIA
     Dosage: GRADUAL TITRATION OF DOSE UP TO 500 MG DAILY.
     Route: 048
     Dates: start: 20061201, end: 20070227
  2. SEROQUEL [Suspect]
     Route: 048
     Dates: start: 20070228, end: 20070407
  3. ZOLOFT [Concomitant]
     Indication: DEPRESSION
     Route: 048
     Dates: start: 20061201, end: 20070426

REACTIONS (1)
  - NEUTROPENIA [None]
